FAERS Safety Report 5941056-4 (Version None)
Quarter: 2008Q4

REPORT INFORMATION
  Report Type: 
  Country: None (occurrence: None)
  Receive Date: 20081104
  Receipt Date: 20081028
  Transmission Date: 20090506
  Serious: Yes (Hospitalization)
  Sender: FDA-Public Use
  Company Number: AU-ROXANE LABORATORIES, INC.-2008-RO-00172RO

PATIENT
  Age: 66 Year
  Sex: Female

DRUGS (9)
  1. CHLORPROMAZINE [Suspect]
  2. DONEPEZIL HCL [Suspect]
     Indication: DEMENTIA ALZHEIMER'S TYPE
  3. DONEPEZIL HCL [Suspect]
     Indication: VASCULAR DEMENTIA
  4. RISPERIDONE [Suspect]
     Indication: DEMENTIA ALZHEIMER'S TYPE
     Dosage: 2MG
  5. RISPERIDONE [Suspect]
     Indication: VASCULAR DEMENTIA
     Dosage: 4MG
  6. BENZOTROPINE [Suspect]
     Indication: PARKINSONISM
  7. OLANZAPINE [Suspect]
     Dosage: 15MG
  8. HYPNOTICS [Suspect]
     Indication: INSOMNIA
  9. LORAZEPAM [Concomitant]
     Indication: CATATONIA
     Dosage: 3MG

REACTIONS (2)
  - CATATONIA [None]
  - NEUROLEPTIC MALIGNANT SYNDROME [None]
